FAERS Safety Report 8848859 (Version 2)
Quarter: 2012Q4

REPORT INFORMATION
  Report Type: 
  Country: FR (occurrence: None)
  Receive Date: 20121016
  Receipt Date: 20121105
  Transmission Date: 20130627
  Serious: Yes (Death)
  Sender: FDA-Public Use
  Company Number: 2012ND000023

PATIENT
  Age: 42 Year
  Sex: Female

DRUGS (6)
  1. TOTECT [Suspect]
     Indication: EXTRAVASATION
     Dosage: ;QD:IV
     Route: 042
     Dates: start: 20120913, end: 20120915
  2. FLUOROURACIL [Concomitant]
  3. EPIRUBICIN [Concomitant]
  4. CYCLOPHOSPHAMIDE [Concomitant]
  5. HEPARIN [Concomitant]
  6. HUMAN GROWTH HORMONE, RECOMBINANT [Concomitant]

REACTIONS (1)
  - Pulmonary embolism [None]
